FAERS Safety Report 24265227 (Version 1)
Quarter: 2024Q3

REPORT INFORMATION
  Report Type: Spontaneous
  Country: US (occurrence: US)
  Receive Date: 20240829
  Receipt Date: 20240829
  Transmission Date: 20241017
  Serious: Yes (Other)
  Sender: ELI LILLY AND CO
  Company Number: US-ELI_LILLY_AND_COMPANY-US202408015688

PATIENT
  Age: 73 Year
  Sex: Male

DRUGS (7)
  1. ERBITUX [Suspect]
     Active Substance: CETUXIMAB
     Indication: Adenocarcinoma of colon
     Dosage: 1000 MG, 2/M 6 OF 12 CYCLES
     Route: 042
     Dates: start: 20240201
  2. OLANZAPINE [Suspect]
     Active Substance: OLANZAPINE
     Indication: Insomnia
     Dosage: UNK UNK, UNKNOWN
     Route: 065
  3. BRAFTOVI [Suspect]
     Active Substance: ENCORAFENIB
     Indication: Adenocarcinoma of colon
     Dosage: 4 DOSAGE FORM
     Route: 048
     Dates: start: 20240201
  4. BRAFTOVI [Suspect]
     Active Substance: ENCORAFENIB
     Dosage: 3 DOSAGE FORM, DAILY
     Route: 048
     Dates: start: 20240215
  5. BRAFTOVI [Suspect]
     Active Substance: ENCORAFENIB
     Dosage: 3 DOSAGE FORM, DAILY
     Route: 048
     Dates: start: 20240327
  6. BRAFTOVI [Suspect]
     Active Substance: ENCORAFENIB
     Dosage: 3 DOSAGE FORM, DAILY
     Route: 048
     Dates: start: 20240523
  7. BRAFTOVI [Suspect]
     Active Substance: ENCORAFENIB
     Dosage: 3 MG, DAILY
     Route: 048
     Dates: start: 20240703

REACTIONS (5)
  - Malignant neoplasm progression [Unknown]
  - Insomnia [Not Recovered/Not Resolved]
  - Drug eruption [Not Recovered/Not Resolved]
  - Fatigue [Not Recovered/Not Resolved]
  - Off label use [Unknown]

NARRATIVE: CASE EVENT DATE: 20240522
